FAERS Safety Report 18644301 (Version 2)
Quarter: 2021Q1

REPORT INFORMATION
  Report Type: Spontaneous
  Country: JP (occurrence: JP)
  Receive Date: 20201221
  Receipt Date: 20210115
  Transmission Date: 20210419
  Serious: Yes (Other)
  Sender: FDA-Public Use
  Company Number: NVSC2020JP336535

PATIENT
  Age: 28 Year
  Sex: Female

DRUGS (2)
  1. NEORAL [Suspect]
     Active Substance: CYCLOSPORINE
     Indication: GENITAL ULCERATION
     Dosage: 200 MG, QD
     Route: 048
     Dates: start: 200703
  2. NEORAL [Suspect]
     Active Substance: CYCLOSPORINE
     Indication: BEHCET^S SYNDROME

REACTIONS (3)
  - Product use in unapproved indication [Unknown]
  - Renal injury [Unknown]
  - Blood creatinine increased [Unknown]
